FAERS Safety Report 8468899 (Version 4)
Quarter: 2015Q1

REPORT INFORMATION
  Report Type: Report from Study
  Country: US (occurrence: US)
  Receive Date: 20120321
  Receipt Date: 20150316
  Transmission Date: 20150721
  Serious: Yes (Death)
  Sender: FDA-Public Use
  Company Number: US-ROCHE-1050252

PATIENT
  Sex: Female

DRUGS (1)
  1. XELODA [Suspect]
     Active Substance: CAPECITABINE
     Indication: MALIGNANT NEOPLASM OF AMPULLA OF VATER
     Dosage: 3 TABLETS
     Route: 048

REACTIONS (1)
  - Pancreatic carcinoma [Fatal]
